FAERS Safety Report 6993411-1 (Version None)
Quarter: 2010Q3

REPORT INFORMATION
  Report Type: 
  Country: None (occurrence: None)
  Receive Date: 20100917
  Receipt Date: 20100108
  Transmission Date: 20110219
  Serious: No
  Sender: FDA-Public Use
  Company Number: US-ASTRAZENECA-2010SE00960

PATIENT

DRUGS (2)
  1. SEROQUEL [Suspect]
     Indication: BIPOLAR DISORDER
     Route: 048
  2. SEROQUEL [Suspect]
     Indication: BORDERLINE PERSONALITY DISORDER
     Route: 048

REACTIONS (2)
  - BIPOLAR DISORDER [None]
  - DRUG DOSE OMISSION [None]
